FAERS Safety Report 16403790 (Version 2)
Quarter: 2019Q3

REPORT INFORMATION
  Report Type: Report from Study
  Country: CN (occurrence: CN)
  Receive Date: 20190607
  Receipt Date: 20190827
  Transmission Date: 20191004
  Serious: Yes (Death)
  Sender: FDA-Public Use
  Company Number: CN-ROCHE-2331633

PATIENT
  Age: 73 Year
  Sex: Male
  Weight: 68 kg

DRUGS (11)
  1. CISPLATIN. [Suspect]
     Active Substance: CISPLATIN
     Indication: NON-SMALL CELL LUNG CANCER
     Dosage: DATE OF MOST RECENT DOSE OF CISPLATIN (103.3 MG) PRIOR TO SAE ONSET: 22/JAN/2019?CISPLATIN WILL BE A
     Route: 042
     Dates: start: 20181115
  2. ACETYLCYSTEINE. [Concomitant]
     Active Substance: ACETYLCYSTEINE
     Indication: COUGH
     Dosage: SOLUTION FOR INHALATION
     Route: 065
     Dates: start: 20190416, end: 20190507
  3. GEMCITABINE. [Suspect]
     Active Substance: GEMCITABINE
     Indication: NON-SMALL CELL LUNG CANCER
     Dosage: DATE OF MOST RECENT DOSE (1721.9 MG) OF GEMCITABINE PRIOR TO SAE ONSET: 30/JAN/2019?GEMCITABINE WILL
     Route: 042
     Dates: start: 20181115
  4. ETIMICIN SULFATE [Concomitant]
     Active Substance: ETIMICIN SULFATE
     Indication: INFECTION
     Route: 065
     Dates: start: 20190426, end: 20190506
  5. VITAMIN C [Concomitant]
     Active Substance: ASCORBIC ACID
     Route: 065
     Dates: start: 20190422, end: 20190507
  6. DEXAMETHASONE SODIUM PHOSPHATE. [Concomitant]
     Active Substance: DEXAMETHASONE SODIUM PHOSPHATE
     Route: 065
     Dates: start: 20190430, end: 20190503
  7. COMPOUND METHOXYPHENAMINE [Concomitant]
     Indication: PRODUCTIVE COUGH
  8. BUDESONIDE. [Concomitant]
     Active Substance: BUDESONIDE
     Indication: COUGH
     Dosage: SUSPENSION FOR INHALATION
     Route: 065
     Dates: start: 20190416, end: 20190507
  9. MINOCYCLINE HYDROCHLORIDE. [Concomitant]
     Active Substance: MINOCYCLINE HYDROCHLORIDE
     Route: 065
     Dates: start: 20190426, end: 20190506
  10. COMPOUND METHOXYPHENAMINE [Concomitant]
     Indication: COUGH
     Route: 065
     Dates: start: 20190426, end: 20190507
  11. ATEZOLIZUMAB. [Suspect]
     Active Substance: ATEZOLIZUMAB
     Indication: NON-SMALL CELL LUNG CANCER
     Dosage: DATE OF MOST RECENT DOSE OF ATEZOLIZUMAB PRIOR TO SAE ONSET: 06/MAR/2019
     Route: 042
     Dates: start: 20181115

REACTIONS (1)
  - Cardiac failure [Fatal]

NARRATIVE: CASE EVENT DATE: 20190601
